FAERS Safety Report 11183764 (Version 2)
Quarter: 2015Q3

REPORT INFORMATION
  Report Type: Spontaneous
  Country: US (occurrence: US)
  Receive Date: 20150612
  Receipt Date: 20150708
  Transmission Date: 20151125
  Serious: Yes (Hospitalization)
  Sender: FDA-Public Use
  Company Number: US-AUROBINDO-AUR-APL-2015-05042

PATIENT
  Age: 45 Year
  Sex: Male

DRUGS (1)
  1. METFORMIN [Suspect]
     Active Substance: METFORMIN HYDROCHLORIDE
     Indication: DIABETES MELLITUS
     Route: 065

REACTIONS (8)
  - Glycosylated haemoglobin increased [Recovered/Resolved]
  - Latent autoimmune diabetes in adults [Recovered/Resolved]
  - Urine ketone body present [Unknown]
  - Blood ketone body [Unknown]
  - Blood glucose increased [Recovered/Resolved]
  - Nausea [Unknown]
  - Diabetic ketoacidosis [Unknown]
  - Asthenia [Unknown]
